FAERS Safety Report 8066211-1 (Version None)
Quarter: 2012Q1

REPORT INFORMATION
  Report Type: 
  Country: None (occurrence: None)
  Receive Date: 20120124
  Receipt Date: 20120122
  Transmission Date: 20120608
  Serious: Yes (Other)
  Sender: FDA-Public Use
  Company Number: US-BAYER-2012-007058

PATIENT

DRUGS (1)
  1. MIRENA [Suspect]
     Indication: PRODUCT USED FOR UNKNOWN INDICATION
     Dosage: 20 ?G/D, CONT
     Route: 015

REACTIONS (3)
  - ABDOMINAL PAIN [None]
  - ASTHENIA [None]
  - VAGINAL HAEMORRHAGE [None]
